FAERS Safety Report 6795597-0 (Version None)
Quarter: 2010Q2

REPORT INFORMATION
  Report Type: 
  Country: None (occurrence: None)
  Receive Date: 20100622
  Receipt Date: 20100608
  Transmission Date: 20101027
  Serious: Yes (Hospitalization)
  Sender: FDA-Public Use
  Company Number: 230015M09SWE

PATIENT
  Age: 65 Year
  Sex: Male

DRUGS (3)
  1. REBIF [Suspect]
     Dosage: 44 MCG, 3 IN 1 WK, SUBCUTANEOUS, 22 MCG, 3 IN 1 WK, SUBCUTANEOUS
     Route: 058
     Dates: end: 20091022
  2. REBIF [Suspect]
     Dosage: 44 MCG, 3 IN 1 WK, SUBCUTANEOUS, 22 MCG, 3 IN 1 WK, SUBCUTANEOUS
     Route: 058
     Dates: start: 19990615
  3. REBIF [Suspect]
     Dosage: 44 MCG, 3 IN 1 WK, SUBCUTANEOUS, 22 MCG, 3 IN 1 WK, SUBCUTANEOUS
     Route: 058
     Dates: start: 20100101

REACTIONS (7)
  - IMPAIRED HEALING [None]
  - INJECTION SITE ABSCESS [None]
  - PALPITATIONS [None]
  - PRURITUS [None]
  - SCAR [None]
  - STAPHYLOCOCCAL ABSCESS [None]
  - WRONG TECHNIQUE IN DRUG USAGE PROCESS [None]
